FAERS Safety Report 8535565-1 (Version None)
Quarter: 2012Q3

REPORT INFORMATION
  Report Type: 
  Country: None (occurrence: None)
  Receive Date: 20120725
  Receipt Date: 20120722
  Transmission Date: 20120928
  Serious: Yes (Hospitalization, Other)
  Sender: FDA-Public Use
  Company Number: US-BAYER-2012-070384

PATIENT
  Age: 55 Year
  Sex: Female

DRUGS (3)
  1. BETASERON [Suspect]
     Dosage: 2 MIU, UNK
     Route: 058
     Dates: start: 20120712, end: 20120713
  2. WELLBUTRIN [Concomitant]
     Dosage: UNK
     Dates: start: 20090101
  3. BETASERON [Suspect]
     Indication: SECONDARY PROGRESSIVE MULTIPLE SCLEROSIS
     Dosage: UNK
     Route: 058
     Dates: start: 20040819, end: 20041201

REACTIONS (9)
  - CONFUSIONAL STATE [None]
  - CENTRAL NERVOUS SYSTEM LESION [None]
  - DYSPNOEA [None]
  - FATIGUE [None]
  - GRAND MAL CONVULSION [None]
  - MASS [None]
  - DISORIENTATION [None]
  - SOMNOLENCE [None]
  - SEIZURE LIKE PHENOMENA [None]
